FAERS Safety Report 6061512-0 (Version None)
Quarter: 2009Q1

REPORT INFORMATION
  Report Type: 
  Country: None (occurrence: None)
  Receive Date: 20090202
  Receipt Date: 20090119
  Transmission Date: 20090719
  Serious: Yes (Hospitalization)
  Sender: FDA-Public Use
  Company Number: FR-ROCHE-611253

PATIENT
  Age: 74 Year
  Sex: Female
  Weight: 55 kg

DRUGS (1)
  1. LARIAM [Suspect]
     Indication: DRUG USE FOR UNKNOWN INDICATION
     Route: 048
     Dates: start: 20081121, end: 20081205

REACTIONS (8)
  - ABDOMINAL PAIN UPPER [None]
  - ALANINE AMINOTRANSFERASE INCREASED [None]
  - BRADYCARDIA [None]
  - DRUG PRESCRIBING ERROR [None]
  - GAMMA-GLUTAMYLTRANSFERASE INCREASED [None]
  - MEDICATION ERROR [None]
  - NAUSEA [None]
  - VERTIGO [None]
